FAERS Safety Report 13783439 (Version 1)
Quarter: 2017Q3

REPORT INFORMATION
  Report Type: Spontaneous
  Country: US (occurrence: US)
  Receive Date: 20170724
  Receipt Date: 20170724
  Transmission Date: 20171127
  Serious: No
  Sender: FDA-Public Use
  Company Number: US-IMPAX LABORATORIES, INC-2017-IPXL-00871

PATIENT
  Age: 32 Year
  Sex: Female

DRUGS (5)
  1. MIDODRINE HYDROCHLORIDE. [Suspect]
     Active Substance: MIDODRINE HYDROCHLORIDE
     Dosage: 10 MG, AT NOON AND 10 MG IN EVENING
     Route: 065
  2. NORTHERA [Suspect]
     Active Substance: DROXIDOPA
     Dosage: 100 MG IN MORNING AND 100 MG IN AFTERNOON
     Route: 065
     Dates: start: 201606
  3. NORTHERA [Suspect]
     Active Substance: DROXIDOPA
     Dosage: 100 MG
     Route: 065
     Dates: start: 201606
  4. NORTHERA [Suspect]
     Active Substance: DROXIDOPA
     Indication: PRODUCT USED FOR UNKNOWN INDICATION
     Dosage: 200 MG IN MORNING
     Route: 065
     Dates: start: 201601
  5. MIDODRINE HYDROCHLORIDE. [Suspect]
     Active Substance: MIDODRINE HYDROCHLORIDE
     Indication: PRODUCT USED FOR UNKNOWN INDICATION
     Dosage: 15 MG, AT NOON AND 15 MG IN EVENING
     Route: 065
     Dates: start: 201606

REACTIONS (9)
  - Balance disorder [Unknown]
  - Nodal arrhythmia [Unknown]
  - Headache [Not Recovered/Not Resolved]
  - Dizziness [Recovering/Resolving]
  - Presyncope [Recovering/Resolving]
  - Fall [Unknown]
  - Constipation [Not Recovered/Not Resolved]
  - Thermal burn [Not Recovered/Not Resolved]
  - Syncope [Recovering/Resolving]

NARRATIVE: CASE EVENT DATE: 2016
